FAERS Safety Report 8198314-5 (Version None)
Quarter: 2012Q1

REPORT INFORMATION
  Report Type: 
  Country: None (occurrence: None)
  Receive Date: 20120309
  Receipt Date: 20120229
  Transmission Date: 20120608
  Serious: Yes (Other)
  Sender: FDA-Public Use
  Company Number: PHHO2012IT003683

PATIENT
  Sex: Male
  Weight: 100 kg

DRUGS (1)
  1. FTY [Suspect]
     Indication: RELAPSING-REMITTING MULTIPLE SCLEROSIS
     Dosage: 0.5 MG, QD
     Route: 048
     Dates: start: 20111214

REACTIONS (4)
  - METASTASES TO LUNG [None]
  - METASTASIS [None]
  - METASTASES TO LIVER [None]
  - CONCOMITANT DISEASE PROGRESSION [None]
